FAERS Safety Report 16366605 (Version 1)
Quarter: 2019Q2

REPORT INFORMATION
  Report Type: Spontaneous
  Country: US (occurrence: US)
  Receive Date: 20190529
  Receipt Date: 20190529
  Transmission Date: 20190711
  Serious: No
  Sender: FDA-Public Use
  Company Number: US-KERYX BIOPHARMACEUTICALS INC.-2019US004769

PATIENT
  Sex: Male

DRUGS (3)
  1. EPOETIN [Concomitant]
     Active Substance: ERYTHROPOIETIN
     Dosage: UNK; DECRASED
     Dates: start: 201810
  2. EPOETIN [Concomitant]
     Active Substance: ERYTHROPOIETIN
     Dosage: UNK
  3. AURYXIA [Suspect]
     Active Substance: TETRAFERRIC TRICITRATE DECAHYDRATE
     Indication: HYPERPHOSPHATAEMIA
     Dosage: UNK
     Route: 048

REACTIONS (2)
  - Faeces discoloured [Recovered/Resolved]
  - Blood iron increased [Unknown]

NARRATIVE: CASE EVENT DATE: 201812
